FAERS Safety Report 4356351-2 (Version None)
Quarter: 2004Q2

REPORT INFORMATION
  Report Type: 
  Country: None (occurrence: None)
  Receive Date: 20040506
  Receipt Date: 20040422
  Transmission Date: 20050107
  Serious: Yes (Hospitalization)
  Sender: FDA-Public Use
  Company Number: US-SHR-04-023659

PATIENT
  Age: 31 Year
  Sex: Female
  Weight: 56.2 kg

DRUGS (1)
  1. MIRENA [Suspect]
     Indication: CONTRACEPTION
     Dosage: 20 UG/DAY, CONT, INTRA-UTERINE
     Route: 015
     Dates: start: 20020422, end: 20031120

REACTIONS (4)
  - CARCINOMA IN SITU [None]
  - CERVICAL DYSPLASIA [None]
  - INTRA-UTERINE CONTRACEPTIVE DEVICE REMOVAL [None]
  - METRORRHAGIA [None]
